FAERS Safety Report 5714725-9 (Version None)
Quarter: 2008Q2

REPORT INFORMATION
  Report Type: 
  Country: None (occurrence: None)
  Receive Date: 20080423
  Receipt Date: 20080421
  Transmission Date: 20081010
  Serious: Yes (Other)
  Sender: FDA-Public Use
  Company Number: US-BRISTOL-MYERS SQUIBB COMPANY-14159453

PATIENT
  Age: 44 Year
  Sex: Female
  Weight: 85 kg

DRUGS (12)
  1. ABILIFY [Suspect]
     Indication: DEPRESSION
     Dosage: ARIPIPRAZOLE 5 MG WAS STARTED ON 16-MAR-2008
     Dates: start: 20080416
  2. ABILIFY [Suspect]
     Indication: SELF INJURIOUS BEHAVIOUR
     Dosage: ARIPIPRAZOLE 5 MG WAS STARTED ON 16-MAR-2008
     Dates: start: 20080416
  3. KLONOPIN [Concomitant]
     Dosage: DURATION: COUPLE OF YEARS
  4. LEXAPRO [Concomitant]
  5. LIPITOR [Concomitant]
     Dates: start: 20070101
  6. TOPAMAX [Concomitant]
     Dates: start: 20050101
  7. SINGULAIR [Concomitant]
     Dates: start: 20040101
  8. FLONASE [Concomitant]
     Dosage: 2SPRAYS/NOSTRIL
     Route: 045
  9. IMITREX [Concomitant]
     Dosage: DURATION:AT LEAST 3 YEARS
  10. NOVOLOG [Concomitant]
     Dates: start: 20040101
  11. LANTUS [Concomitant]
     Dosage: 1 DF=20UNITS, AM;12UNITS,PM.
     Dates: start: 20040101
  12. ONE-A-DAY [Concomitant]

REACTIONS (1)
  - WOUND INFECTION [None]
